FAERS Safety Report 12198989 (Version 1)
Quarter: 2016Q1

REPORT INFORMATION
  Report Type: Spontaneous
  Country: US (occurrence: None)
  Receive Date: 20160321
  Receipt Date: 20160321
  Transmission Date: 20160526
  Serious: Yes (Disabling, Other)
  Sender: FDA-Public Use
  Company Number: None

PATIENT
  Age: 41 Year
  Sex: Female
  Weight: 54.43 kg

DRUGS (1)
  1. BUPROPION. [Suspect]
     Active Substance: BUPROPION
     Indication: SMOKING CESSATION THERAPY

REACTIONS (7)
  - Aggression [None]
  - Irritability [None]
  - Depression [None]
  - Hostility [None]
  - Bipolar disorder [None]
  - Loss of employment [None]
  - Suicide attempt [None]
